FAERS Safety Report 5767487-3 (Version None)
Quarter: 2008Q2

REPORT INFORMATION
  Report Type: 
  Country: None (occurrence: None)
  Receive Date: 20080612
  Receipt Date: 20080604
  Transmission Date: 20081010
  Serious: Yes (Other)
  Sender: FDA-Public Use
  Company Number: JP-ELI_LILLY_AND_COMPANY-JP200806001437

PATIENT
  Sex: Female

DRUGS (2)
  1. LISPRO NPL [Suspect]
     Indication: TYPE 2 DIABETES MELLITUS
     Dosage: 12 IU, EACH MORNING
     Route: 058
     Dates: start: 20071218, end: 20080117
  2. LISPRO NPL [Suspect]
     Dosage: 4 IU, EACH EVENING
     Route: 058
     Dates: start: 20071218, end: 20080117

REACTIONS (1)
  - RESPIRATORY FAILURE [None]
